FAERS Safety Report 5776758-6 (Version None)
Quarter: 2008Q2

REPORT INFORMATION
  Report Type: 
  Country: None (occurrence: None)
  Receive Date: 20080616
  Receipt Date: 20080530
  Transmission Date: 20081010
  Serious: Yes (Other)
  Sender: FDA-Public Use
  Company Number: DSJ-2008-06602

PATIENT

DRUGS (8)
  1. OLMESARTAN MEDOXOMIL [Suspect]
     Indication: HYPERTENSION
     Dosage: PER ORAL
     Route: 048
  2. NORVASC [Suspect]
  3. BASEN OD (VOGLIBOSE)(VOGLIBOSE) [Concomitant]
  4. DEPAS (ETIZOLAM)(ETIZOLAM) [Concomitant]
  5. PARIET (RABEPRAZOLE SODIUM) (TABLET) (RABEPRAZOLE SODIUM) [Suspect]
     Indication: REFLUX OESOPHAGITIS
     Dosage: PER ORAL
     Route: 048
  6. SELBEX (TEPRENONE) (CAPSULES) (TEPRENONE) [Suspect]
     Indication: REFLUX OESOPHAGITIS
     Dosage: PER ORAL
     Route: 048
  7. CHOLEBINE MINI(COLESTILAN) (COLESTILAN) [Suspect]
     Indication: LIPIDS ABNORMAL
     Dosage: 2 SCHES, PER ORAL
     Route: 048
  8. PREDONINE (PREDNISOLONE) (TABLET)(PREDNISOLONE) [Suspect]
     Indication: RHEUMATOID ARTHRITIS
     Dosage: 5 MG, PER ORAL
     Route: 048

REACTIONS (1)
  - HEPATITIS [None]
